FAERS Safety Report 19769695 (Version 1)
Quarter: 2021Q3

REPORT INFORMATION
  Report Type: Spontaneous
  Country: JP (occurrence: JP)
  Receive Date: 20210831
  Receipt Date: 20210831
  Transmission Date: 20211014
  Serious: Yes (Other)
  Sender: FDA-Public Use
  Company Number: JP-ROCHE-2901815

PATIENT

DRUGS (6)
  1. MEILAX [Suspect]
     Active Substance: ETHYL LOFLAZEPATE
     Route: 048
  2. LEXOTAN [Suspect]
     Active Substance: BROMAZEPAM
     Indication: PRODUCT USED FOR UNKNOWN INDICATION
     Route: 048
  3. MEILAX [Suspect]
     Active Substance: ETHYL LOFLAZEPATE
     Indication: PROPHYLAXIS
     Route: 048
  4. RIVOTRIL [Suspect]
     Active Substance: CLONAZEPAM
     Indication: PROPHYLAXIS
     Dosage: RIVOTRIL 0.5 MG (HALF TABLET/4 TIMES A DAY)
     Route: 048
  5. CONSTAN (JAPAN) [Suspect]
     Active Substance: ALPRAZOLAM
     Indication: PRODUCT USED FOR UNKNOWN INDICATION
     Route: 048
  6. DEPAS (JAPAN) [Suspect]
     Active Substance: ETIZOLAM
     Indication: PRODUCT USED FOR UNKNOWN INDICATION
     Route: 048

REACTIONS (2)
  - Drug abuse [Unknown]
  - Stupor [Unknown]

NARRATIVE: CASE EVENT DATE: 202008
